FAERS Safety Report 26058523 (Version 2)
Quarter: 2025Q4

REPORT INFORMATION
  Report Type: Spontaneous
  Country: CN (occurrence: CN)
  Receive Date: 20251118
  Receipt Date: 20251118
  Transmission Date: 20260117
  Serious: Yes (Life-Threatening, Other)
  Sender: RANBAXY
  Company Number: CN-SUN PHARMACEUTICAL INDUSTRIES LTD-2025R1-536816

PATIENT
  Age: 59 Year
  Sex: Female

DRUGS (2)
  1. CISPLATIN [Suspect]
     Active Substance: CISPLATIN
     Indication: Gallbladder cancer
     Dosage: 25 MILLIGRAM/SQ. METER, ON DAYS 1 AND 8
     Route: 065
     Dates: start: 20200402
  2. GEMCITABINE [Suspect]
     Active Substance: GEMCITABINE
     Indication: Gallbladder cancer
     Dosage: 1000 MILLIGRAM/SQ. METER, ON DAYS 1 AND 8
     Route: 065
     Dates: start: 20200402

REACTIONS (2)
  - Gastrointestinal obstruction [Recovering/Resolving]
  - Stevens-Johnson syndrome [Recovering/Resolving]
